FAERS Safety Report 5000047-0 (Version None)
Quarter: 2006Q2

REPORT INFORMATION
  Report Type: 
  Country: None (occurrence: None)
  Receive Date: 20060501
  Receipt Date: 20060404
  Transmission Date: 20061013
  Serious: Yes (Hospitalization)
  Sender: FDA-Public Use
  Company Number: 2006054086

PATIENT
  Age: 75 Year
  Sex: Female

DRUGS (5)
  1. ATARAX [Suspect]
     Indication: ILL-DEFINED DISORDER
     Dosage: 100 MG (100 MG, 1 IN 1 D), ORAL
     Route: 048
     Dates: end: 20060214
  2. OXYCONTIN [Suspect]
     Indication: ILL-DEFINED DISORDER
     Dosage: ORAL
     Route: 048
     Dates: end: 20060218
  3. MYOLASTAN (TETRAZEPAM) [Suspect]
     Indication: ILL-DEFINED DISORDER
     Dosage: 150 MG (150 MG, 1 IN 1 D), ORAL
     Route: 048
     Dates: end: 20060218
  4. EFFEXOR [Suspect]
     Indication: ILL-DEFINED DISORDER
     Dosage: TWO DOSE FORMS (DAILY), ORAL
     Route: 048
  5. LEXOMIL (BROMAZEPAM) [Suspect]
     Indication: ILL-DEFINED DISORDER
     Dosage: 0.5 DOSAGE FORM (DAILY), ORAL
     Route: 048

REACTIONS (2)
  - DEPRESSED LEVEL OF CONSCIOUSNESS [None]
  - DISORIENTATION [None]
